FAERS Safety Report 9646167 (Version 1)
Quarter: 2013Q4

REPORT INFORMATION
  Report Type: Spontaneous
  Country: US (occurrence: US)
  Receive Date: 20131025
  Receipt Date: 20131025
  Transmission Date: 20140711
  Serious: No
  Sender: FDA-Public Use
  Company Number: US-009507513-1310USA001742

PATIENT
  Sex: Female

DRUGS (1)
  1. TICE BCG LIVE [Suspect]
     Indication: PROPHYLAXIS
     Dosage: UNK
     Route: 030

REACTIONS (3)
  - Exposure via inhalation [Unknown]
  - Accidental exposure to product [Unknown]
  - No adverse event [Unknown]
